FAERS Safety Report 8587694-4 (Version None)
Quarter: 2012Q3

REPORT INFORMATION
  Report Type: 
  Country: None (occurrence: None)
  Receive Date: 20120813
  Receipt Date: 20120802
  Transmission Date: 20120928
  Serious: Yes (Hospitalization)
  Sender: FDA-Public Use
  Company Number: ES-BRISTOL-MYERS SQUIBB COMPANY-16847477

PATIENT
  Age: 48 Year
  Sex: Female

DRUGS (4)
  1. LEUCOVORIN CALCIUM [Suspect]
     Indication: COLORECTAL CANCER METASTATIC
     Dosage: 9MAY12-20JUN12(42DYS) 25JUL12-ONG MOST RECENT INF 20JUN12 INTER ON 4JUL12
     Route: 042
     Dates: start: 20120509
  2. IRINOTECAN HCL [Suspect]
     Indication: COLORECTAL CANCER METASTATIC
     Dosage: 9MAY12-20JUN12(42DYS) 25JUL12-ONG NO OF INF 4 MOST RECENT INF 20JUN12 INTER ON 4JUL12
     Route: 042
     Dates: start: 20120509
  3. CETUXIMAB [Suspect]
     Indication: COLORECTAL CANCER METASTATIC
     Dosage: 9MAY12-27JUN12(49DYS) 25JUL12-ONG INTER ON 4JUL12
     Route: 042
     Dates: start: 20120509
  4. FLUOROURACIL [Suspect]
     Indication: COLORECTAL CANCER METASTATIC
     Dosage: 9MAY12-20JUN12(42DYS) 25JUL12-ONG NO OF INF 4 MOST RECENT INF 20JUN12 INTER ON 4JUL12
     Route: 042
     Dates: start: 20120509

REACTIONS (1)
  - EMBOLISM [None]
